FAERS Safety Report 12894009 (Version 2)
Quarter: 2016Q4

REPORT INFORMATION
  Report Type: Spontaneous
  Country: FR (occurrence: FR)
  Receive Date: 20161028
  Receipt Date: 20161111
  Transmission Date: 20170207
  Serious: Yes (Hospitalization)
  Sender: FDA-Public Use
  Company Number: FR-SA-2016SA194509

PATIENT
  Age: 38 Year
  Sex: Male

DRUGS (10)
  1. ETHAMBUTOL [Concomitant]
     Active Substance: ETHAMBUTOL HYDROCHLORIDE
     Dates: start: 20160902
  2. BACTRIM [Concomitant]
     Active Substance: SULFAMETHOXAZOLE\TRIMETHOPRIM
     Dates: start: 20160915, end: 20160927
  3. TARDYFERON [Concomitant]
     Active Substance: FERROUS SULFATE
  4. ISENTRESS [Concomitant]
     Active Substance: RALTEGRAVIR POTASSIUM
     Dates: start: 20160915
  5. LEDERFOLINE [Concomitant]
     Active Substance: LEUCOVORIN CALCIUM
  6. RIFINAH [Suspect]
     Active Substance: ISONIAZID\RIFAMPIN
     Dosage: RIFINAH 300 MG/150 MG,FREQUENCY 2 DF (2 DF,1 IN 1 DAY(S))
     Route: 048
     Dates: start: 20160902, end: 20160929
  7. TRUVADA [Concomitant]
     Active Substance: EMTRICITABINE\TENOFOVIR DISOPROXIL FUMARATE
     Dates: start: 20160915
  8. TRAMADOL. [Concomitant]
     Active Substance: TRAMADOL
  9. PYRAZINAMIDE. [Concomitant]
     Active Substance: PYRAZINAMIDE
     Dates: start: 20160902
  10. INNOHEP [Concomitant]
     Active Substance: TINZAPARIN SODIUM

REACTIONS (4)
  - Cholestasis [Recovering/Resolving]
  - Bilirubin conjugated increased [Recovered/Resolved]
  - Hepatocellular injury [Recovering/Resolving]
  - Blood bilirubin increased [Recovered/Resolved]

NARRATIVE: CASE EVENT DATE: 20160929
